FAERS Safety Report 21871597 (Version 1)
Quarter: 2023Q1

REPORT INFORMATION
  Report Type: Spontaneous
  Country: US (occurrence: None)
  Receive Date: 20230113
  Receipt Date: 20230113
  Transmission Date: 20230418
  Serious: Yes (Other)
  Sender: FDA-Public Use
  Company Number: None

PATIENT
  Age: 30 Year
  Sex: Male
  Weight: 87.75 kg

DRUGS (2)
  1. SUBLOCADE [Suspect]
     Active Substance: BUPRENORPHINE
     Indication: Drug use disorder
     Dosage: OTHER FREQUENCY : MONTHLY;?
     Route: 058
     Dates: start: 20230106
  2. Lidocaine 1ml 1% SQ [Concomitant]
     Dates: start: 20230106, end: 20230106

REACTIONS (2)
  - Injection site reaction [None]
  - Skin ulcer [None]

NARRATIVE: CASE EVENT DATE: 20230106
